FAERS Safety Report 10073954 (Version 1)
Quarter: 2014Q2

REPORT INFORMATION
  Report Type: Spontaneous
  Country: US (occurrence: US)
  Receive Date: 20140411
  Receipt Date: 20140411
  Transmission Date: 20141212
  Serious: No
  Sender: FDA-Public Use
  Company Number: US-SA-2013SA109970

PATIENT
  Age: 87 Year
  Sex: Female
  Weight: 59 kg

DRUGS (1)
  1. ALLEGRA D [Suspect]
     Route: 048

REACTIONS (6)
  - Blood glucose increased [Unknown]
  - Visual impairment [Recovered/Resolved]
  - Malaise [Recovered/Resolved]
  - Feeling drunk [Recovered/Resolved]
  - Dizziness [Unknown]
  - Balance disorder [Unknown]
